FAERS Safety Report 7417611-1 (Version None)
Quarter: 2011Q2

REPORT INFORMATION
  Report Type: 
  Country: None (occurrence: None)
  Receive Date: 20110415
  Receipt Date: 20110411
  Transmission Date: 20111010
  Serious: Yes (Other)
  Sender: FDA-Public Use
  Company Number: US-GENZYME-FLUD-1001068

PATIENT
  Age: 65 Year

DRUGS (12)
  1. FLUDARA [Suspect]
     Indication: MYELODYSPLASTIC SYNDROME
     Dosage: 30 MG/M2, QDX4
     Route: 065
  2. DECITABINE [Suspect]
     Dosage: 20 MG/M2, QDX5
     Route: 042
  3. DECITABINE [Suspect]
     Dosage: 20 MG/M2, QDX5
     Route: 042
  4. MELPHALAN [Suspect]
     Indication: MYELODYSPLASTIC SYNDROME
     Dosage: 140 MG/M2, UNK
     Route: 065
  5. MELPHALAN [Suspect]
     Indication: STEM CELL TRANSPLANT
  6. DECITABINE [Suspect]
     Indication: MYELODYSPLASTIC SYNDROME
     Dosage: 20 MG/M2, QDX5
     Route: 042
  7. METHOTREXATE [Concomitant]
     Indication: PROPHYLAXIS AGAINST GRAFT VERSUS HOST DISEASE
     Dosage: UNK
     Route: 065
  8. DECITABINE [Suspect]
     Dosage: 20 MG/M2, QDX5
     Route: 042
  9. FLUDARA [Suspect]
     Indication: STEM CELL TRANSPLANT
  10. DECITABINE [Suspect]
     Dosage: 20 MG/M2, QDX5
     Route: 042
  11. DECITABINE [Suspect]
     Dosage: 20 MG/M2, QDX5
     Route: 042
  12. TACROLIMUS [Concomitant]
     Indication: PROPHYLAXIS AGAINST GRAFT VERSUS HOST DISEASE
     Dosage: UNK
     Route: 065

REACTIONS (4)
  - ARRHYTHMIA [None]
  - ACUTE GRAFT VERSUS HOST DISEASE IN SKIN [None]
  - ACUTE GRAFT VERSUS HOST DISEASE IN INTESTINE [None]
  - DIARRHOEA [None]
